FAERS Safety Report 14056815 (Version 1)
Quarter: 2017Q4

REPORT INFORMATION
  Report Type: Spontaneous
  Country: DE (occurrence: DE)
  Receive Date: 20171006
  Receipt Date: 20171006
  Transmission Date: 20180321
  Serious: Yes (Congenital Anomaly)
  Sender: FDA-Public Use
  Company Number: DE-TORRENT-00007178

PATIENT
  Sex: Female

DRUGS (4)
  1. QUETIAPINE. [Suspect]
     Active Substance: QUETIAPINE
  2. CLEXANE [Concomitant]
     Active Substance: ENOXAPARIN SODIUM
  3. FOLIC ACID. [Concomitant]
     Active Substance: FOLIC ACID
  4. PHENPROCOUMON [Concomitant]
     Active Substance: PHENPROCOUMON

REACTIONS (6)
  - Hypoplastic left heart syndrome [Not Recovered/Not Resolved]
  - Foetal exposure during pregnancy [Unknown]
  - Cleft lip and palate [Not Recovered/Not Resolved]
  - Dysmorphism [Not Recovered/Not Resolved]
  - Hygroma colli [Unknown]
  - Talipes [Not Recovered/Not Resolved]
